FAERS Safety Report 14126096 (Version 1)
Quarter: 2017Q4

REPORT INFORMATION
  Report Type: Spontaneous
  Country: US (occurrence: US)
  Receive Date: 20171025
  Receipt Date: 20171025
  Transmission Date: 20180321
  Serious: No
  Sender: FDA-Public Use
  Company Number: US-BAYER-2017-192671

PATIENT

DRUGS (1)
  1. ZEGERID OTC CAPSULES [Suspect]
     Active Substance: OMEPRAZOLE\SODIUM BICARBONATE
     Dosage: UNK

REACTIONS (9)
  - Nightmare [None]
  - Blood pressure increased [Unknown]
  - Dizziness [Unknown]
  - Gastritis [Unknown]
  - Epigastric discomfort [Unknown]
  - Dyspepsia [Unknown]
  - Palpitations [Unknown]
  - Chest discomfort [Unknown]
  - Feeding disorder [Unknown]
